FAERS Safety Report 13844944 (Version 1)
Quarter: 2017Q3

REPORT INFORMATION
  Report Type: Spontaneous
  Country: GB (occurrence: GB)
  Receive Date: 20170808
  Receipt Date: 20170808
  Transmission Date: 20171127
  Serious: Yes (Death, Other)
  Sender: FDA-Public Use
  Company Number: GB-TEVA-792993ACC

PATIENT
  Age: 79 Year
  Sex: Female

DRUGS (4)
  1. CITALOPRAM HYDROBROMIDE. [Concomitant]
     Active Substance: CITALOPRAM HYDROBROMIDE
  2. OMEPRAZOLE. [Concomitant]
     Active Substance: OMEPRAZOLE
  3. CARBOMER 980 [Concomitant]
     Active Substance: CARBOMER HOMOPOLYMER TYPE C (ALLYL PENTAERYTHRITOL CROSSLINKED)
  4. WARFARIN SODIUM. [Suspect]
     Active Substance: WARFARIN SODIUM
     Indication: PULMONARY EMBOLISM
     Dosage: PER INTERNATIONAL NORMALIZED RATIO ( INR 2.5 AT TIME OF INCIDENT)
     Route: 048
     Dates: start: 20160825

REACTIONS (2)
  - Coma [Not Recovered/Not Resolved]
  - Subdural haemorrhage [Fatal]

NARRATIVE: CASE EVENT DATE: 20161127
